FAERS Safety Report 8026431-9 (Version None)
Quarter: 2012Q1

REPORT INFORMATION
  Report Type: 
  Country: None (occurrence: None)
  Receive Date: 20120105
  Receipt Date: 20111222
  Transmission Date: 20120608
  Serious: Yes (Hospitalization, Other)
  Sender: FDA-Public Use
  Company Number: JP-WATSON-2011-22107

PATIENT
  Age: 5 Year
  Sex: Male

DRUGS (3)
  1. AZITHROMYCIN [Suspect]
     Indication: PYREXIA
  2. AZITHROMYCIN [Suspect]
     Indication: PHARYNGITIS
     Dosage: UNKNOWN
     Route: 065
     Dates: start: 20001010
  3. BETAMETHASONE [Suspect]
     Indication: STEVENS-JOHNSON SYNDROME
     Dosage: UNK

REACTIONS (2)
  - INFECTION REACTIVATION [None]
  - STEVENS-JOHNSON SYNDROME [None]
